FAERS Safety Report 14019772 (Version 1)
Quarter: 2017Q3

REPORT INFORMATION
  Report Type: Spontaneous
  Country: GB (occurrence: GB)
  Receive Date: 20170928
  Receipt Date: 20170928
  Transmission Date: 20171128
  Serious: Yes (Disabling, Other)
  Sender: FDA-Public Use
  Company Number: GB-MYLANLABS-2017M1058922

PATIENT
  Age: 69 Year
  Sex: Male
  Weight: 100.23 kg

DRUGS (7)
  1. SIMVASTATIN. [Concomitant]
     Active Substance: SIMVASTATIN
  2. MESALAZINE [Concomitant]
     Active Substance: MESALAMINE
  3. BENDROFLUMETHIAZIDE [Concomitant]
     Active Substance: BENDROFLUMETHIAZIDE
  4. ASPIRIN                            /00002701/ [Concomitant]
     Active Substance: ASPIRIN
  5. LUPRON DEPOT [Concomitant]
     Active Substance: LEUPROLIDE ACETATE
  6. AMLODIPINE [Suspect]
     Active Substance: AMLODIPINE BESYLATE
     Indication: HYPERTENSION
     Route: 048
     Dates: start: 1990, end: 20170606
  7. FOSINOPRIL [Concomitant]
     Active Substance: FOSINOPRIL

REACTIONS (6)
  - Headache [Unknown]
  - Fatigue [Not Recovered/Not Resolved]
  - Pain of skin [Unknown]
  - Paraesthesia [Unknown]
  - Petechiae [Not Recovered/Not Resolved]
  - Pain in extremity [Not Recovered/Not Resolved]

NARRATIVE: CASE EVENT DATE: 2001
